FAERS Safety Report 25362891 (Version 2)
Quarter: 2025Q3

REPORT INFORMATION
  Report Type: Spontaneous
  Country: EU (occurrence: EU)
  Receive Date: 20250527
  Receipt Date: 20250710
  Transmission Date: 20251021
  Serious: Yes (Other)
  Sender: INSUD PHARMA
  Company Number: None

PATIENT
  Age: 34 Year
  Sex: Female
  Weight: 73 kg

DRUGS (7)
  1. PROGESTERONE [Suspect]
     Active Substance: PROGESTERONE
     Indication: Assisted fertilisation
     Route: 067
     Dates: start: 20250331, end: 20250407
  2. TRIPTORELIN ACETATE [Suspect]
     Active Substance: TRIPTORELIN ACETATE
     Indication: Assisted fertilisation
     Route: 030
     Dates: start: 20241101, end: 20250322
  3. FOLLITROPIN\LUTROPIN ALFA [Suspect]
     Active Substance: FOLLITROPIN\LUTROPIN ALFA
     Indication: Assisted fertilisation
     Route: 059
     Dates: start: 20250322, end: 20250328
  4. FOLLITROPIN ALFA [Suspect]
     Active Substance: FOLLITROPIN ALFA
     Indication: Assisted fertilisation
     Route: 059
     Dates: start: 20250319, end: 20250328
  5. GONADOTROPHIN, CHORIONIC [Suspect]
     Active Substance: GONADOTROPHIN, CHORIONIC
     Indication: Assisted fertilisation
     Route: 059
     Dates: start: 20250329, end: 20250329
  6. DOLIPRANE [Concomitant]
     Active Substance: ACETAMINOPHEN
  7. FLURBIPROFEN [Concomitant]
     Active Substance: FLURBIPROFEN

REACTIONS (1)
  - Autoimmune thyroiditis [Recovering/Resolving]

NARRATIVE: CASE EVENT DATE: 20250419
